FAERS Safety Report 6588078-0 (Version None)
Quarter: 2010Q1

REPORT INFORMATION
  Report Type: 
  Country: None (occurrence: None)
  Receive Date: 20100218
  Receipt Date: 20100208
  Transmission Date: 20100710
  Serious: Yes (Other)
  Sender: FDA-Public Use
  Company Number: CA-JNJCH-2010003184

PATIENT
  Age: 74 Year
  Sex: Female

DRUGS (1)
  1. LISTERINE COOL CITRUS [Suspect]
     Indication: DENTAL DISORDER PROPHYLAXIS
     Dosage: TEXT:UNSPECIFIED ONCE DAILY
     Route: 048
     Dates: start: 20100124, end: 20100125

REACTIONS (9)
  - APPLICATION SITE BURN [None]
  - APPLICATION SITE DISCOLOURATION [None]
  - APPLICATION SITE PAIN [None]
  - APPLICATION SITE VESICLES [None]
  - CRYING [None]
  - DEPRESSED MOOD [None]
  - EATING DISORDER [None]
  - GINGIVAL RECESSION [None]
  - WRONG TECHNIQUE IN DRUG USAGE PROCESS [None]
